FAERS Safety Report 7211703-8 (Version None)
Quarter: 2011Q1

REPORT INFORMATION
  Report Type: 
  Country: None (occurrence: None)
  Receive Date: 20110105
  Receipt Date: 20101228
  Transmission Date: 20110831
  Serious: Yes (Hospitalization)
  Sender: FDA-Public Use
  Company Number: FR-PFIZER INC-2010179830

PATIENT
  Age: 46 Year
  Sex: Male

DRUGS (21)
  1. FARMORUBICIN [Suspect]
     Dosage: UNK
     Route: 042
     Dates: start: 20100905
  2. AMLOR [Concomitant]
  3. OXYCODONE HCL [Concomitant]
  4. STILNOX [Concomitant]
  5. ACETAMINOPHEN [Concomitant]
  6. ACUPAN [Concomitant]
  7. FORLAX [Concomitant]
  8. LASIX [Concomitant]
  9. HUMALOG [Concomitant]
  10. LYRICA [Suspect]
     Dosage: 75 MG, 2X/DAY
     Route: 048
     Dates: start: 20101023
  11. PROFENID [Concomitant]
  12. CIPROFLOXACIN HYDROCHLORIDE [Concomitant]
  13. BRISTOPEN [Concomitant]
  14. SOLUDACTONE [Concomitant]
  15. FENTANYL [Concomitant]
  16. CALCIPARINE [Concomitant]
  17. ATARAX [Concomitant]
  18. TAXOL [Suspect]
     Dosage: UNK
     Route: 042
     Dates: start: 20100905
  19. SOLUPRED [Suspect]
     Dosage: 60 MG, 1X/DAY
     Route: 048
     Dates: start: 20101023
  20. LOVENOX [Concomitant]
  21. MOPRAL [Concomitant]

REACTIONS (1)
  - BACTERIAL SEPSIS [None]
